FAERS Safety Report 7278597-6 (Version None)
Quarter: 2011Q1

REPORT INFORMATION
  Report Type: 
  Country: None (occurrence: None)
  Receive Date: 20110207
  Receipt Date: 20110201
  Transmission Date: 20110831
  Serious: Yes (Death)
  Sender: FDA-Public Use
  Company Number: PHHY2011AU08369

PATIENT
  Age: 51 Year
  Sex: Female

DRUGS (2)
  1. FLUDARA [Suspect]
     Indication: LYMPHOMA
     Dosage: 03 CYCLES
  2. CYCLOPHOSPHAMIDE [Suspect]
     Indication: LYMPHOMA
     Dosage: 03 CYCLES

REACTIONS (2)
  - REFRACTORY ANAEMIA [None]
  - MYELODYSPLASTIC SYNDROME [None]
